FAERS Safety Report 7912009-1 (Version None)
Quarter: 2011Q4

REPORT INFORMATION
  Report Type: 
  Country: None (occurrence: None)
  Receive Date: 20111108
  Receipt Date: 20101008
  Transmission Date: 20120403
  Serious: Yes (Other)
  Sender: FDA-Public Use
  Company Number: CART-1000045

PATIENT
  Age: 37 Year
  Sex: Male

DRUGS (1)
  1. CARTICEL [Suspect]
     Indication: CARTILAGE INJURY
     Dosage: , INTRA-ARTICULAR
     Route: 014
     Dates: start: 20100518, end: 20100518

REACTIONS (1)
  - JOINT ADHESION [None]
